FAERS Safety Report 4959996-1 (Version None)
Quarter: 2006Q1

REPORT INFORMATION
  Report Type: 
  Country: None (occurrence: None)
  Receive Date: 20060331
  Receipt Date: 20051017
  Transmission Date: 20060701
  Serious: Yes (Hospitalization)
  Sender: FDA-Public Use
  Company Number: US-MERCK-0602USA00357

PATIENT
  Age: 48 Year
  Sex: Female
  Weight: 81 kg

DRUGS (3)
  1. VIOXX [Suspect]
     Indication: PLEURISY
     Route: 048
     Dates: start: 19990501
  2. VIOXX [Suspect]
     Route: 048
     Dates: start: 20020525
  3. VIOXX [Suspect]
     Route: 048

REACTIONS (29)
  - ANAL DISCOMFORT [None]
  - ANTINUCLEAR ANTIBODY POSITIVE [None]
  - ANXIETY [None]
  - APHONIA [None]
  - BRAIN STEM SYNDROME [None]
  - CEREBROVASCULAR ACCIDENT [None]
  - CHEST DISCOMFORT [None]
  - CHEST PAIN [None]
  - CONNECTIVE TISSUE DISORDER [None]
  - DEPRESSION [None]
  - DYSPNOEA [None]
  - GUILLAIN-BARRE SYNDROME [None]
  - HEADACHE [None]
  - HYPERTENSION [None]
  - INSOMNIA [None]
  - MUSCULAR WEAKNESS [None]
  - NAUSEA [None]
  - OEDEMA PERIPHERAL [None]
  - PAIN IN EXTREMITY [None]
  - PALPITATIONS [None]
  - PLEURISY [None]
  - PLEURITIC PAIN [None]
  - RASH [None]
  - SCLERODERMA [None]
  - SKIN DISCOLOURATION [None]
  - THROAT TIGHTNESS [None]
  - TRANSIENT ISCHAEMIC ATTACK [None]
  - VIRAL INFECTION [None]
  - WEIGHT DECREASED [None]
